FAERS Safety Report 6557469-6 (Version None)
Quarter: 2010Q1

REPORT INFORMATION
  Report Type: 
  Country: None (occurrence: None)
  Receive Date: 20100127
  Receipt Date: 20100127
  Transmission Date: 20100710
  Serious: Yes (Hospitalization)
  Sender: FDA-Public Use
  Company Number: None

PATIENT
  Age: 72 Year
  Sex: Male
  Weight: 112 kg

DRUGS (10)
  1. DIGOXIN [Suspect]
     Indication: CARDIAC FAILURE CONGESTIVE
     Dosage: 0.25 MG DAILY PO, CHRONIC
     Route: 048
  2. COREG [Concomitant]
  3. ASPIRIN [Concomitant]
  4. JANVIA [Concomitant]
  5. FLEXERIL [Concomitant]
  6. CRESTOR [Concomitant]
  7. SERTRALINE HCL [Concomitant]
  8. TESTOSTERONE [Concomitant]
  9. WARFARIN SODIUM [Concomitant]
  10. TEKTURNA [Concomitant]

REACTIONS (4)
  - CARDIOACTIVE DRUG LEVEL INCREASED [None]
  - CHEST DISCOMFORT [None]
  - DYSPNOEA [None]
  - INTERNATIONAL NORMALISED RATIO INCREASED [None]
